FAERS Safety Report 10160733 (Version 1)
Quarter: 2014Q2

REPORT INFORMATION
  Report Type: Spontaneous
  Country: JP (occurrence: JP)
  Receive Date: 20140508
  Receipt Date: 20140508
  Transmission Date: 20141212
  Serious: Yes (Hospitalization)
  Sender: FDA-Public Use
  Company Number: JP-BRACCO-008037

PATIENT
  Age: 78 Year
  Sex: Male
  Weight: 54 kg

DRUGS (4)
  1. MECOBALAMIN [Concomitant]
  2. IOPAMIRON [Suspect]
     Indication: COMPUTERISED TOMOGRAM
     Route: 042
     Dates: start: 20140314, end: 20140314
  3. PROCYLIN [Concomitant]
  4. LIMAPROST [Concomitant]

REACTIONS (3)
  - Electrocardiogram ST segment elevation [Recovered/Resolved]
  - Hyperhidrosis [Recovered/Resolved]
  - Blood pressure decreased [Recovered/Resolved]
